FAERS Safety Report 5523056-1 (Version None)
Quarter: 2007Q4

REPORT INFORMATION
  Report Type: 
  Country: None (occurrence: None)
  Receive Date: 20071119
  Receipt Date: 20071109
  Transmission Date: 20080405
  Serious: Yes (Other)
  Sender: FDA-Public Use
  Company Number: 2007SP022765

PATIENT
  Sex: Male

DRUGS (1)
  1. DR. SCHOLL'S ULTRA THIN CORN REMOVERS (40 PCT) [Suspect]
     Indication: DRUG USE FOR UNKNOWN INDICATION
     Dosage: TOP
     Route: 061

REACTIONS (2)
  - INFECTION [None]
  - TOE AMPUTATION [None]
